FAERS Safety Report 15525245 (Version 1)
Quarter: 2018Q4

REPORT INFORMATION
  Report Type: Spontaneous
  Country: AE (occurrence: AE)
  Receive Date: 20181018
  Receipt Date: 20181018
  Transmission Date: 20190205
  Serious: Yes (Other)
  Sender: FDA-Public Use
  Company Number: AE-ABBVIE-18K-166-2523107-00

PATIENT
  Age: 46 Year
  Sex: Male

DRUGS (2)
  1. METHOTREXATE. [Concomitant]
     Active Substance: METHOTREXATE
     Indication: PRODUCT USED FOR UNKNOWN INDICATION
  2. HUMIRA [Suspect]
     Active Substance: ADALIMUMAB
     Indication: PSORIASIS
     Route: 058
     Dates: start: 2011

REACTIONS (8)
  - Jaundice [Unknown]
  - Drug-induced liver injury [Unknown]
  - Hypoalbuminaemia [Unknown]
  - Liver function test abnormal [Recovering/Resolving]
  - Chest X-ray abnormal [Unknown]
  - Mycobacterium tuberculosis complex test positive [Recovered/Resolved]
  - Myopathy [Recovered/Resolved]
  - International normalised ratio increased [Unknown]

NARRATIVE: CASE EVENT DATE: 2011
